FAERS Safety Report 10506652 (Version 1)
Quarter: 2014Q3

REPORT INFORMATION
  Report Type: Spontaneous
  Country: US (occurrence: None)
  Receive Date: 20140915
  Receipt Date: 20140915
  Transmission Date: 20150326
  Serious: Yes (Other)
  Sender: FDA-Public Use
  Company Number: 2013-US-004155

PATIENT
  Age: 44 Year
  Sex: Female
  Weight: 65.3 kg

DRUGS (3)
  1. CLONAZEPAM (CLONAZEPAM) [Concomitant]
  2. ADDERALL [Concomitant]
     Active Substance: AMPHETAMINE ASPARTATE\AMPHETAMINE SULFATE\DEXTROAMPHETAMINE SACCHARATE\DEXTROAMPHETAMINE SULFATE
  3. XYREM [Suspect]
     Active Substance: SODIUM OXYBATE
     Indication: NARCOLEPSY
     Route: 048
     Dates: start: 201311, end: 2013

REACTIONS (3)
  - Blood pressure increased [None]
  - Pain in extremity [None]
  - Iron deficiency anaemia [None]

NARRATIVE: CASE EVENT DATE: 2013
